FAERS Safety Report 10283200 (Version 1)
Quarter: 2014Q3

REPORT INFORMATION
  Report Type: Spontaneous
  Country: DE (occurrence: DE)
  Receive Date: 20140708
  Receipt Date: 20140708
  Transmission Date: 20150326
  Serious: Yes (Other)
  Sender: FDA-Public Use
  Company Number: PHHY2014DE081556

PATIENT
  Sex: Male

DRUGS (4)
  1. ZOLEDRONATE [Suspect]
     Active Substance: ZOLEDRONIC ACID
     Indication: METASTASES TO BONE
     Dosage: UNK UKN, UNK
     Dates: start: 20111107
  2. SUNITINIB [Concomitant]
     Active Substance: SUNITINIB
     Indication: METASTATIC RENAL CELL CARCINOMA
     Dosage: 50 MG, 4 WEEKS ON, 2 WEEKS OFF
     Dates: start: 20111107, end: 201112
  3. SUNITINIB [Concomitant]
     Active Substance: SUNITINIB
     Dosage: 50 MG, 4 WEEKS ON, 2 WEEKS OFF
     Dates: start: 20120319
  4. ZOLEDRONATE [Suspect]
     Active Substance: ZOLEDRONIC ACID
     Dosage: UNK UKN, UNK
     Dates: start: 20120319

REACTIONS (16)
  - Metastases to adrenals [Unknown]
  - Metastases to lung [Unknown]
  - Adrenal disorder [Unknown]
  - Pulmonary arterial hypertension [Unknown]
  - Cardiomyopathy [Unknown]
  - Malignant neoplasm progression [Unknown]
  - Diarrhoea [Unknown]
  - Dysgeusia [Unknown]
  - Yellow skin [Unknown]
  - Device related infection [Unknown]
  - Myocardial infarction [Unknown]
  - Metastases to bone [Unknown]
  - Weight decreased [Unknown]
  - Eastern Cooperative Oncology Group performance status worsened [Recovering/Resolving]
  - Chronic obstructive pulmonary disease [Unknown]
  - Fatigue [Unknown]

NARRATIVE: CASE EVENT DATE: 2012
